FAERS Safety Report 13466928 (Version 1)
Quarter: 2017Q2

REPORT INFORMATION
  Report Type: Spontaneous
  Country: US (occurrence: US)
  Receive Date: 20170421
  Receipt Date: 20170421
  Transmission Date: 20170830
  Serious: No
  Sender: FDA-Public Use
  Company Number: US-GLAXOSMITHKLINE-US2017053684

PATIENT
  Sex: Female

DRUGS (1)
  1. BENLYSTA [Suspect]
     Active Substance: BELIMUMAB
     Indication: SYSTEMIC LUPUS ERYTHEMATOSUS
     Dosage: UNK UNK, ONCE MONTHLY
     Route: 042

REACTIONS (14)
  - Malaise [Unknown]
  - Photophobia [Unknown]
  - Nausea [Unknown]
  - Chills [Unknown]
  - Bedridden [Unknown]
  - Feeling hot [Unknown]
  - Condition aggravated [Unknown]
  - Vomiting [Unknown]
  - Pain [Unknown]
  - Dizziness [Unknown]
  - Feeding disorder [Unknown]
  - Decreased appetite [Unknown]
  - Headache [Unknown]
  - Hyperhidrosis [Unknown]
